FAERS Safety Report 4516765-4 (Version None)
Quarter: 2004Q4

REPORT INFORMATION
  Report Type: 
  Country: None (occurrence: None)
  Receive Date: 20041029
  Receipt Date: 20040726
  Transmission Date: 20050328
  Serious: No
  Sender: FDA-Public Use
  Company Number: 2004-118819-NL

PATIENT
  Age: 22 Year

DRUGS (1)
  1. NUVARING [Suspect]
     Indication: CONTRACEPTION
     Dosage: DF DAILY VAGINAL
     Route: 067
     Dates: start: 20040719, end: 20040723

REACTIONS (3)
  - BACK PAIN [None]
  - LIMB DISCOMFORT [None]
  - PELVIC PAIN [None]
